FAERS Safety Report 14108383 (Version 1)
Quarter: 2017Q4

REPORT INFORMATION
  Report Type: Spontaneous
  Country: FR (occurrence: FR)
  Receive Date: 20171019
  Receipt Date: 20171019
  Transmission Date: 20180321
  Serious: Yes (Hospitalization)
  Sender: FDA-Public Use
  Company Number: FR-PFIZER INC-2017447339

PATIENT
  Age: 27 Year
  Sex: Male

DRUGS (10)
  1. PRODILANTIN [Suspect]
     Active Substance: FOSPHENYTOIN SODIUM
     Indication: EPILEPSY
     Dosage: UNK
     Dates: start: 20170927, end: 20170927
  2. DIAZEPAM. [Concomitant]
     Active Substance: DIAZEPAM
  3. GARDENAL /00023201/ [Suspect]
     Active Substance: PHENOBARBITAL
     Indication: EPILEPSY
     Dosage: UNK
     Dates: start: 20170927, end: 20170927
  4. VENLAFAXIN [Concomitant]
     Active Substance: VENLAFAXINE HYDROCHLORIDE
  5. CLOBAZAM [Concomitant]
     Active Substance: CLOBAZAM
  6. LEVETIRACETAM MYLAN [Suspect]
     Active Substance: LEVETIRACETAM
     Indication: EPILEPSY
     Dosage: UNK
     Dates: start: 20170926, end: 20170928
  7. DEPAKINE /00228502/ [Suspect]
     Active Substance: VALPROATE SODIUM
     Indication: EPILEPSY
     Dosage: UNK
     Dates: end: 20170925
  8. DEPAKINE /00228502/ [Suspect]
     Active Substance: VALPROATE SODIUM
     Dosage: 750 MG, 2X/DAY
     Route: 048
     Dates: start: 20170928, end: 20171001
  9. MIANSERIN HCL [Concomitant]
     Active Substance: MIANSERIN HYDROCHLORIDE
  10. LAMOTRIGINE. [Concomitant]
     Active Substance: LAMOTRIGINE

REACTIONS (2)
  - Hepatocellular injury [Recovering/Resolving]
  - Cholestasis [Not Recovered/Not Resolved]

NARRATIVE: CASE EVENT DATE: 201709
